FAERS Safety Report 15813724 (Version 2)
Quarter: 2020Q3

REPORT INFORMATION
  Report Type: Report from Study
  Country: DE (occurrence: DE)
  Receive Date: 20190111
  Receipt Date: 20190212
  Transmission Date: 20201104
  Serious: Yes (Hospitalization)
  Sender: FDA-Public Use
  Company Number: DE-JNJFOC-20190111512

PATIENT
  Age: 3 Decade
  Sex: Female
  Weight: 60 kg

DRUGS (14)
  1. TRABECTEDIN [Suspect]
     Active Substance: TRABECTEDIN
     Route: 042
  2. NOVAMINSULFON [Concomitant]
     Active Substance: METAMIZOLE
     Indication: ILL-DEFINED DISORDER
     Route: 065
     Dates: start: 201709
  3. JONOSTERIL [Concomitant]
     Indication: FLUID REPLACEMENT
     Route: 065
     Dates: start: 20190105
  4. ONDANSETRON [Concomitant]
     Active Substance: ONDANSETRON
     Indication: PROPHYLAXIS OF NAUSEA AND VOMITING
     Route: 065
     Dates: start: 201709
  5. NIVOLUMAB [Suspect]
     Active Substance: NIVOLUMAB
     Indication: SARCOMA METASTATIC
     Route: 065
     Dates: start: 20181009, end: 20181218
  6. PANTOZOL [Concomitant]
     Active Substance: PANTOPRAZOLE SODIUM
     Indication: GASTROINTESTINAL DISORDER THERAPY
     Route: 065
     Dates: start: 201610
  7. TRABECTEDIN [Suspect]
     Active Substance: TRABECTEDIN
     Route: 042
  8. METOCLOPRAMIDE. [Concomitant]
     Active Substance: METOCLOPRAMIDE
     Indication: PROPHYLAXIS OF NAUSEA AND VOMITING
     Route: 065
     Dates: start: 201709
  9. VOMEX A [Concomitant]
     Active Substance: DIMENHYDRINATE
     Indication: PROPHYLAXIS OF NAUSEA AND VOMITING
     Route: 065
     Dates: start: 201709
  10. INNOHEP [Concomitant]
     Active Substance: TINZAPARIN SODIUM
     Indication: ILL-DEFINED DISORDER
     Route: 065
     Dates: start: 201710
  11. VERGENTAN [Concomitant]
     Active Substance: ALIZAPRIDE HYDROCHLORIDE
     Indication: PROPHYLAXIS OF NAUSEA AND VOMITING
     Route: 065
     Dates: start: 201709
  12. AMPHO MORONAL [Concomitant]
     Active Substance: AMPHOTERICIN B
     Indication: MUCOSITIS MANAGEMENT
     Route: 065
     Dates: start: 201710
  13. TRABECTEDIN [Suspect]
     Active Substance: TRABECTEDIN
     Indication: SARCOMA METASTATIC
     Route: 042
     Dates: start: 20180726, end: 20181218
  14. SMOFKABIVEN [Concomitant]
     Active Substance: AMINO ACIDS\DEXTROSE\ELECTROLYTES NOS\SOYBEAN OIL
     Indication: NUTRITIONAL SUPPLEMENTATION
     Dosage: 800 KCAL
     Route: 065
     Dates: start: 20190106, end: 20190107

REACTIONS (1)
  - Pneumonitis [Recovering/Resolving]

NARRATIVE: CASE EVENT DATE: 20190104
